FAERS Safety Report 24576633 (Version 1)
Quarter: 2024Q4

REPORT INFORMATION
  Report Type: Spontaneous
  Country: US (occurrence: None)
  Receive Date: 20241104
  Receipt Date: 20241104
  Transmission Date: 20250114
  Serious: Yes (Other)
  Sender: Public
  Company Number: None

PATIENT
  Age: 58 Year
  Sex: Male

DRUGS (1)
  1. TEMOZOLOMIDE [Suspect]
     Active Substance: TEMOZOLOMIDE
     Indication: Brain neoplasm malignant
     Dosage: 425MG DAILY FOR 5 DAYS OF 28 DAY CYCLE

REACTIONS (1)
  - Pulmonary embolism [None]
